FAERS Safety Report 6032864-2 (Version None)
Quarter: 2009Q1

REPORT INFORMATION
  Report Type: 
  Country: None (occurrence: None)
  Receive Date: 20090105
  Receipt Date: 20071212
  Transmission Date: 20090719
  Serious: Yes (Other)
  Sender: FDA-Public Use
  Company Number: BDI-009800

PATIENT
  Age: 68 Year
  Sex: Female

DRUGS (2)
  1. PROHANCE [Suspect]
     Indication: ANGIOGRAM
     Dosage: 60ML ONCE INTRAVENOUS
     Route: 042
     Dates: start: 20070628, end: 20070628
  2. PROHANCE [Suspect]
     Indication: INTERMITTENT CLAUDICATION
     Dosage: 60ML ONCE INTRAVENOUS
     Route: 042
     Dates: start: 20070628, end: 20070628

REACTIONS (1)
  - ANAPHYLACTIC REACTION [None]
